FAERS Safety Report 23975810 (Version 1)
Quarter: 2024Q2

REPORT INFORMATION
  Report Type: Spontaneous
  Country: US (occurrence: US)
  Receive Date: 20240614
  Receipt Date: 20240614
  Transmission Date: 20240716
  Serious: No
  Sender: FDA-Public Use
  Company Number: US-MSNLABS-2024MSNSPO01248

PATIENT

DRUGS (1)
  1. DIMETHYL FUMARATE [Suspect]
     Active Substance: DIMETHYL FUMARATE
     Indication: Product used for unknown indication
     Route: 065

REACTIONS (8)
  - Hyperhidrosis [Unknown]
  - Balance disorder [Unknown]
  - Lethargy [Unknown]
  - Asthenia [Unknown]
  - Product substitution issue [Unknown]
  - Flushing [Unknown]
  - Erythema [Unknown]
  - Nausea [Unknown]
